FAERS Safety Report 19764982 (Version 2)
Quarter: 2021Q4

REPORT INFORMATION
  Report Type: Spontaneous
  Country: US (occurrence: US)
  Receive Date: 20210831
  Receipt Date: 20211101
  Transmission Date: 20220303
  Serious: No
  Sender: FDA-Public Use
  Company Number: US-JNJFOC-20210841844

PATIENT

DRUGS (1)
  1. ZYRTEC [Suspect]
     Active Substance: CETIRIZINE HYDROCHLORIDE
     Indication: Multiple allergies
     Dosage: 1 TABLET SEVEN TIMES A DAY
     Route: 065

REACTIONS (3)
  - Dry mouth [Unknown]
  - Overdose [Unknown]
  - Therapeutic product effect incomplete [Unknown]
